FAERS Safety Report 20379141 (Version 3)
Quarter: 2022Q2

REPORT INFORMATION
  Report Type: Report from Study
  Country: US (occurrence: US)
  Receive Date: 20220126
  Receipt Date: 20220523
  Transmission Date: 20220721
  Serious: Yes (Hospitalization)
  Sender: FDA-Public Use
  Company Number: US-Ipsen Biopharmaceuticals, Inc.-2022-01449

PATIENT
  Sex: Female

DRUGS (1)
  1. SOMATULINE DEPOT [Suspect]
     Active Substance: LANREOTIDE ACETATE
     Indication: Acromegaly
     Dosage: 120 MG/0.5 ML
     Route: 058
     Dates: start: 202003

REACTIONS (10)
  - COVID-19 [Recovering/Resolving]
  - Emotional disorder [Recovering/Resolving]
  - Depression [Recovering/Resolving]
  - Nervousness [Recovering/Resolving]
  - Flatulence [Recovering/Resolving]
  - Abdominal pain upper [Recovering/Resolving]
  - Fatigue [Recovering/Resolving]
  - Abdominal distension [Recovering/Resolving]
  - Abdominal distension [Recovering/Resolving]
  - Injection site pain [Recovering/Resolving]
